FAERS Safety Report 12862580 (Version 1)
Quarter: 2016Q4

REPORT INFORMATION
  Report Type: Spontaneous
  Country: US (occurrence: US)
  Receive Date: 20161019
  Receipt Date: 20161019
  Transmission Date: 20170207
  Serious: No
  Sender: FDA-Public Use
  Company Number: US-TOLMAR, INC.-2016US003598

PATIENT

DRUGS (1)
  1. ELIGARD [Suspect]
     Active Substance: LEUPROLIDE ACETATE
     Indication: PRODUCT USED FOR UNKNOWN INDICATION
     Dosage: 30 MG, EVERY 4 MONTH
     Route: 058

REACTIONS (3)
  - Syringe issue [Unknown]
  - Device defective [Unknown]
  - Wrong technique in product usage process [Unknown]
